FAERS Safety Report 24759004 (Version 2)
Quarter: 2025Q1

REPORT INFORMATION
  Report Type: Spontaneous
  Country: TW (occurrence: TW)
  Receive Date: 20241220
  Receipt Date: 20250106
  Transmission Date: 20250409
  Serious: Yes (Hospitalization, Other)
  Sender: SANOFI AVENTIS
  Company Number: TW-SA-2024SA370520

PATIENT
  Age: 49 Year
  Sex: Female
  Weight: 76 kg

DRUGS (3)
  1. OXALIPLATIN [Suspect]
     Active Substance: OXALIPLATIN
     Indication: Rectal cancer stage III
     Dosage: UNK UNK, QOW
  2. FLUOROURACIL [Suspect]
     Active Substance: FLUOROURACIL
     Indication: Rectal cancer stage III
     Dosage: UNK, QOW
  3. LEUCOVORIN [Suspect]
     Active Substance: LEUCOVORIN\LEUCOVORIN CALCIUM
     Indication: Rectal cancer stage III
     Dosage: UNK, QOW

REACTIONS (31)
  - Neuropathy peripheral [Unknown]
  - Bradykinesia [Unknown]
  - Sleep disorder [Unknown]
  - Insomnia [Unknown]
  - Fear of death [Unknown]
  - Pain [Unknown]
  - Paraesthesia [Unknown]
  - Pain in extremity [Unknown]
  - Mental fatigue [Unknown]
  - Pallor [Unknown]
  - Plicated tongue [Unknown]
  - Tongue coated [Unknown]
  - Tongue discolouration [Unknown]
  - Swollen tongue [Unknown]
  - Lip dry [Unknown]
  - Gingival recession [Unknown]
  - Nail discolouration [Unknown]
  - Dry mouth [Unknown]
  - Chromaturia [Unknown]
  - Lacrimation increased [Unknown]
  - Restlessness [Unknown]
  - Logorrhoea [Unknown]
  - Dyspnoea [Unknown]
  - Hyperhidrosis [Unknown]
  - Dysgeusia [Unknown]
  - Decreased appetite [Unknown]
  - Hypoaesthesia [Unknown]
  - Fatigue [Unknown]
  - Back pain [Unknown]
  - Yawning [Unknown]
  - Skin exfoliation [Unknown]

NARRATIVE: CASE EVENT DATE: 20220411
